FAERS Safety Report 13114863 (Version 1)
Quarter: 2017Q1

REPORT INFORMATION
  Report Type: Spontaneous
  Country: US (occurrence: US)
  Receive Date: 20170113
  Receipt Date: 20170113
  Transmission Date: 20170428
  Serious: Yes (Other)
  Sender: FDA-Public Use
  Company Number: US-009507513-1701FRA003090

PATIENT
  Age: 32 Year
  Sex: Female
  Weight: 74 kg

DRUGS (12)
  1. SUCCINYLCHOLINE CHLORIDE. [Concomitant]
     Active Substance: SUCCINYLCHOLINE CHLORIDE
     Indication: INDUCTION OF ANAESTHESIA
     Dosage: 100 MG, UNKNOWN
  2. AMPHETAMINE (+) DEXTROAMPHETAMINE [Concomitant]
     Active Substance: AMPHETAMINE SULFATE\DEXTROAMPHETAMINE
     Route: 048
  3. REMERON [Concomitant]
     Active Substance: MIRTAZAPINE
  4. TRAZODONE HYDROCHLORIDE. [Concomitant]
     Active Substance: TRAZODONE HYDROCHLORIDE
  5. ZEMURON [Suspect]
     Active Substance: ROCURONIUM BROMIDE
     Indication: INDUCTION OF ANAESTHESIA
     Dosage: 2.5 MG, ONCE
     Route: 042
  6. GLYCOPYRROLATE. [Concomitant]
     Active Substance: GLYCOPYRROLATE
     Indication: INDUCTION OF ANAESTHESIA
     Dosage: 0.2 MG, UNKNOWN
     Route: 042
  7. METHOHEXITAL [Concomitant]
     Active Substance: METHOHEXITAL
     Indication: INDUCTION OF ANAESTHESIA
     Dosage: 100 MG, UNKNOWN
  8. BUPROPION HYDROCHLORIDE. [Concomitant]
     Active Substance: BUPROPION HYDROCHLORIDE
  9. ESTRADIOL. [Concomitant]
     Active Substance: ESTRADIOL
     Route: 062
  10. SPIRONOLACTONE. [Concomitant]
     Active Substance: SPIRONOLACTONE
  11. ESTROGEN NOS [Concomitant]
     Active Substance: ESTROGENS
  12. ZEMURON [Suspect]
     Active Substance: ROCURONIUM BROMIDE
     Indication: NEUROMUSCULAR BLOCKADE

REACTIONS (1)
  - Apnoea [Recovered/Resolved]
